FAERS Safety Report 9481016 (Version 2)
Quarter: 2013Q3

REPORT INFORMATION
  Report Type: Spontaneous
  Country: US (occurrence: US)
  Receive Date: 20130828
  Receipt Date: 20130828
  Transmission Date: 20140515
  Serious: Yes (Hospitalization)
  Sender: FDA-Public Use
  Company Number: US-AMGEN-KDL146158

PATIENT
  Age: 29 Year
  Sex: Female

DRUGS (1)
  1. ENBREL [Suspect]
     Indication: PSORIASIS
     Dosage: 50 MG, QWK
     Route: 058
     Dates: start: 20050328

REACTIONS (9)
  - Facial pain [Unknown]
  - Swelling face [Unknown]
  - Dyspnoea [Unknown]
  - Abasia [Unknown]
  - Rash macular [Unknown]
  - Generalised erythema [Unknown]
  - Skin exfoliation [Unknown]
  - Oedema peripheral [Unknown]
  - Pain in extremity [Unknown]
